FAERS Safety Report 5653586-3 (Version None)
Quarter: 2008Q1

REPORT INFORMATION
  Report Type: 
  Country: None (occurrence: None)
  Receive Date: 20080306
  Receipt Date: 20080225
  Transmission Date: 20080703
  Serious: Yes (Hospitalization, Other)
  Sender: FDA-Public Use
  Company Number: US-JNJFOC-20071100837

PATIENT
  Sex: Female
  Weight: 75.3 kg

DRUGS (15)
  1. FENTANYL TRANSDERMAL SYSTEM [Suspect]
     Indication: PAIN
     Route: 062
  2. FENTANYL TRANSDERMAL SYSTEM [Suspect]
     Indication: MIGRAINE
     Route: 062
  3. FENTANYL TRANSDERMAL SYSTEM [Suspect]
     Indication: SCOLIOSIS
     Route: 062
  4. DURAGESIC-100 [Suspect]
     Indication: MIGRAINE
     Route: 062
  5. DURAGESIC-100 [Suspect]
     Indication: SCOLIOSIS
     Route: 062
  6. GABITRIL [Concomitant]
     Indication: EPILEPSY
     Route: 048
  7. TOPAMAX [Concomitant]
     Indication: CONVULSION
     Route: 048
  8. LIDODERM [Concomitant]
     Indication: PAIN
     Route: 062
  9. IMITREX [Concomitant]
     Indication: MIGRAINE
     Route: 048
  10. IMITREX [Concomitant]
     Indication: HEADACHE
     Dosage: 1-2 A DAY AS NEEDED
     Route: 048
  11. CLONAZEPAM [Concomitant]
     Indication: DEPRESSION
     Route: 048
  12. CLONAZEPAM [Concomitant]
     Indication: NERVOUSNESS
     Route: 048
  13. TRAZODONE HCL [Concomitant]
     Indication: SLEEP DISORDER
     Dosage: AT BEDTIME
     Route: 048
  14. LUNESTA [Concomitant]
     Indication: SLEEP DISORDER
     Dosage: AT BEDTIME
     Route: 048
  15. CYMBALTA [Concomitant]
     Indication: DEPRESSION
     Route: 048

REACTIONS (18)
  - ABDOMINAL ADHESIONS [None]
  - ABDOMINAL PAIN UPPER [None]
  - ANXIETY [None]
  - APPLICATION SITE DISCOLOURATION [None]
  - APPLICATION SITE IRRITATION [None]
  - APPLICATION SITE PRURITUS [None]
  - APPLICATION SITE RASH [None]
  - CARDIAC DISORDER [None]
  - DEHYDRATION [None]
  - DRUG ADMINISTERED AT INAPPROPRIATE SITE [None]
  - DRUG EFFECT DECREASED [None]
  - HYPERHIDROSIS [None]
  - PAIN [None]
  - PHARMACEUTICAL PRODUCT COMPLAINT [None]
  - POOR DENTAL CONDITION [None]
  - SWELLING [None]
  - URINARY INCONTINENCE [None]
  - WRONG TECHNIQUE IN DRUG USAGE PROCESS [None]
